FAERS Safety Report 14280188 (Version 3)
Quarter: 2018Q2

REPORT INFORMATION
  Report Type: Report from Study
  Country: FR (occurrence: FR)
  Receive Date: 20171213
  Receipt Date: 20180628
  Transmission Date: 20180711
  Serious: Yes (Hospitalization)
  Sender: FDA-Public Use
  Company Number: FR-SHIRE-FR201729713

PATIENT

DRUGS (12)
  1. PEGASPARGASE [Suspect]
     Active Substance: PEGASPARGASE
     Indication: ACUTE LYMPHOCYTIC LEUKAEMIA
     Dosage: 750 IU, 1X/DAY:QD
     Route: 042
     Dates: start: 20170821, end: 20171004
  2. DEXAMETHASONE. [Suspect]
     Active Substance: DEXAMETHASONE
     Indication: ACUTE LYMPHOCYTIC LEUKAEMIA
     Dosage: 4 MG, 1X/DAY:QD
     Route: 048
     Dates: start: 20170920, end: 20170924
  3. VINCRISTINE [Suspect]
     Active Substance: VINCRISTINE
     Indication: ACUTE LYMPHOCYTIC LEUKAEMIA
     Dosage: 0.9 MG, 1X/DAY:QD
     Route: 042
     Dates: start: 20170817, end: 20171023
  4. 6-MERCAPTOPURINE MONOHYDRATE [Suspect]
     Active Substance: MERCAPTOPURINE
     Indication: ACUTE LYMPHOCYTIC LEUKAEMIA
     Dosage: 34 MG, 1X/DAY:QD
     Route: 048
     Dates: start: 20170822
  5. 6-MERCAPTOPURINE MONOHYDRATE [Suspect]
     Active Substance: MERCAPTOPURINE
     Dosage: 34 UNK, UNK
     Route: 048
     Dates: start: 20170920, end: 20171018
  6. CYCLOPHOSPHAMIDE. [Suspect]
     Active Substance: CYCLOPHOSPHAMIDE
     Dosage: 650 UNK, UNK
     Route: 065
     Dates: start: 20171004
  7. CYTARABINE. [Suspect]
     Active Substance: CYTARABINE
     Dosage: 188 UNK, UNK
     Route: 042
     Dates: start: 20171207
  8. PEGASPARGASE [Suspect]
     Active Substance: PEGASPARGASE
     Dosage: 825 IU, UNK
     Route: 042
     Dates: start: 20171130
  9. PEGASPARGASE [Suspect]
     Active Substance: PEGASPARGASE
     Dosage: 1250 IU, UNK
     Route: 042
     Dates: start: 20171023
  10. CYTARABINE. [Suspect]
     Active Substance: CYTARABINE
     Indication: ACUTE LYMPHOCYTIC LEUKAEMIA
     Dosage: 49 MG, 1X/DAY:QD
     Route: 042
     Dates: start: 20171006, end: 20171009
  11. CYCLOPHOSPHAMIDE. [Suspect]
     Active Substance: CYCLOPHOSPHAMIDE
     Indication: ACUTE LYMPHOCYTIC LEUKAEMIA
     Dosage: 640 MG, UNK
     Route: 065
     Dates: start: 20171116
  12. METHOTREXATE. [Suspect]
     Active Substance: METHOTREXATE
     Indication: ACUTE LYMPHOCYTIC LEUKAEMIA
     Dosage: 12 MG, 1X/DAY:QD
     Route: 037
     Dates: start: 20170822, end: 20171006

REACTIONS (1)
  - Hypoglycaemia [Recovered/Resolved]

NARRATIVE: CASE EVENT DATE: 20171017
